FAERS Safety Report 9303089 (Version 1)
Quarter: 2013Q2

REPORT INFORMATION
  Report Type: Spontaneous
  Country: US (occurrence: None)
  Receive Date: 20130521
  Receipt Date: 20130521
  Transmission Date: 20140414
  Serious: No
  Sender: FDA-Public Use
  Company Number: None

PATIENT
  Age: 63 Year
  Sex: Male

DRUGS (1)
  1. XELODA 500MG ROCHE PHARAMCEUTICALS [Suspect]
     Dosage: XELODA 500MG 4 BID X14 DAYS ON, 7 OFF P.O.
     Route: 048

REACTIONS (1)
  - Disease progression [None]
